FAERS Safety Report 10253236 (Version 1)
Quarter: 2014Q2

REPORT INFORMATION
  Report Type: Spontaneous
  Country: US (occurrence: US)
  Receive Date: 20140623
  Receipt Date: 20140623
  Transmission Date: 20141212
  Serious: No
  Sender: FDA-Public Use
  Company Number: US-ZOGENIX, INC.-2011ZX000462

PATIENT
  Age: 29 Year
  Sex: Male
  Weight: 65.83 kg

DRUGS (3)
  1. SUMAVEL DOSEPRO [Suspect]
     Indication: MIGRAINE
  2. SOMA [Concomitant]
     Indication: PAIN
     Route: 048
  3. OXYCODONE [Concomitant]
     Indication: PAIN
     Route: 048

REACTIONS (3)
  - Laceration [Recovered/Resolved]
  - Wound haemorrhage [Recovering/Resolving]
  - Incorrect dose administered by device [Recovered/Resolved]
